FAERS Safety Report 4914106-1 (Version None)
Quarter: 2006Q1

REPORT INFORMATION
  Report Type: 
  Country: None (occurrence: None)
  Receive Date: 20060213
  Receipt Date: 20030813
  Transmission Date: 20060701
  Serious: Yes (Death, Life-Threatening, Hospitalization, Other)
  Sender: FDA-Public Use
  Company Number: WAES 0303PHL00005

PATIENT
  Age: 72 Year
  Sex: Male

DRUGS (3)
  1. COZAAR [Suspect]
     Indication: CARDIAC FAILURE CONGESTIVE
     Route: 048
     Dates: start: 20020923, end: 20030323
  2. CARVEDILOL [Concomitant]
  3. ISOSORBIDE DINITRATE [Concomitant]

REACTIONS (23)
  - ACUTE LEFT VENTRICULAR FAILURE [None]
  - ANAEMIA [None]
  - ANTI-HBS ANTIBODY POSITIVE [None]
  - BENIGN PROSTATIC HYPERPLASIA [None]
  - BRADYCARDIA [None]
  - CARDIAC ARREST [None]
  - COLD SWEAT [None]
  - DILATATION ATRIAL [None]
  - DYSPNOEA [None]
  - ELECTROCARDIOGRAM POOR R-WAVE PROGRESSION [None]
  - ELECTROCARDIOGRAM ST-T CHANGE [None]
  - FAECAL INCONTINENCE [None]
  - HAEMATOMA [None]
  - HAEMATURIA [None]
  - HAEMORRHAGE [None]
  - HEART RATE INCREASED [None]
  - HYPOTENSION [None]
  - MYOCARDIAL INFARCTION [None]
  - POST PROCEDURAL COMPLICATION [None]
  - RESPIRATORY RATE INCREASED [None]
  - SEPSIS [None]
  - SINUS BRADYCARDIA [None]
  - URINARY RETENTION [None]
